FAERS Safety Report 23047170 (Version 1)
Quarter: 2023Q4

REPORT INFORMATION
  Report Type: Spontaneous
  Country: JP (occurrence: JP)
  Receive Date: 20231009
  Receipt Date: 20231009
  Transmission Date: 20240109
  Serious: Yes (Other)
  Sender: FDA-Public Use
  Company Number: JP-MSD-M2023-42297

PATIENT
  Age: 9 Decade
  Sex: Female

DRUGS (1)
  1. CUBICIN [Suspect]
     Active Substance: DAPTOMYCIN
     Indication: Osteomyelitis
     Dosage: UNK
     Route: 041

REACTIONS (4)
  - Pneumonia bacterial [Unknown]
  - Eosinophilic pneumonia [Unknown]
  - Eosinophil count increased [Unknown]
  - Product use in unapproved indication [Unknown]
